FAERS Safety Report 7463795-9 (Version None)
Quarter: 2011Q2

REPORT INFORMATION
  Report Type: 
  Country: None (occurrence: None)
  Receive Date: 20110506
  Receipt Date: 20110427
  Transmission Date: 20111010
  Serious: Yes (Hospitalization, Other)
  Sender: FDA-Public Use
  Company Number: PHHY2011BR36489

PATIENT
  Sex: Female
  Weight: 54 kg

DRUGS (4)
  1. GLEEVEC [Suspect]
     Indication: GASTROINTESTINAL STROMAL TUMOUR
     Dosage: 400 MG, QD
     Dates: start: 20060201
  2. PURAN T4 [Concomitant]
     Indication: HYPOTHYROIDISM
     Dosage: 75 MG, QD (1 TABLET)
  3. GLEEVEC [Suspect]
     Dosage: 400 MG, QD
  4. GLEEVEC [Suspect]
     Dosage: 800 MG, QD

REACTIONS (5)
  - OVARIAN ENLARGEMENT [None]
  - METASTASES TO PELVIS [None]
  - DENGUE FEVER [None]
  - NEOPLASM MALIGNANT [None]
  - METASTASES TO OVARY [None]
